FAERS Safety Report 8412145-X (Version None)
Quarter: 2012Q2

REPORT INFORMATION
  Report Type: 
  Country: None (occurrence: None)
  Receive Date: 20120605
  Receipt Date: 20120504
  Transmission Date: 20120825
  Serious: No
  Sender: FDA-Public Use
  Company Number: US-AMGEN-USASP2012028728

PATIENT
  Age: 57 Year
  Sex: Female

DRUGS (2)
  1. ENBREL [Suspect]
     Indication: RHEUMATOID ARTHRITIS
     Dosage: 50 MG, QWK
     Dates: start: 20120425, end: 20120504
  2. PLAQUENIL [Concomitant]
     Dosage: 1 MG, UNK
     Dates: start: 20020101

REACTIONS (5)
  - INJECTION SITE SWELLING [None]
  - INJECTION SITE ERYTHEMA [None]
  - RASH GENERALISED [None]
  - INJECTION SITE PRURITUS [None]
  - INJECTION SITE INDURATION [None]
